FAERS Safety Report 18725783 (Version 4)
Quarter: 2022Q2

REPORT INFORMATION
  Report Type: Spontaneous
  Country: US (occurrence: US)
  Receive Date: 20210111
  Receipt Date: 20220513
  Transmission Date: 20220721
  Serious: No
  Sender: FDA-Public Use
  Company Number: US-PFIZER INC-2021012763

PATIENT
  Age: 67 Year
  Sex: Male

DRUGS (2)
  1. XELJANZ [Suspect]
     Active Substance: TOFACITINIB CITRATE
     Dosage: 5 MG, 2X/DAY
  2. XELJANZ [Suspect]
     Active Substance: TOFACITINIB CITRATE
     Dosage: 5 MG, 3X/DAY (ACCIDENTALLY TOOK ONE EXTRA TABLET OF XELJANZ 5MG. INSTEAD OF TAKING 2 TABLETS A DAY)

REACTIONS (3)
  - Wrong dose [Unknown]
  - Pain [Unknown]
  - Therapeutic response unexpected [Recovered/Resolved]
